FAERS Safety Report 12466111 (Version 2)
Quarter: 2016Q4

REPORT INFORMATION
  Report Type: Spontaneous
  Country: US (occurrence: US)
  Receive Date: 20160614
  Receipt Date: 20161226
  Transmission Date: 20170207
  Serious: Yes (Death, Other)
  Sender: FDA-Public Use
  Company Number: US-TAKEDA-TPA2013A01686

PATIENT

DRUGS (1)
  1. ACTOS [Suspect]
     Active Substance: PIOGLITAZONE HYDROCHLORIDE
     Indication: TYPE 2 DIABETES MELLITUS
     Dosage: UNK
     Route: 048
     Dates: start: 200210, end: 2004

REACTIONS (3)
  - Metastases to central nervous system [Fatal]
  - Bladder cancer [Unknown]
  - Lung adenocarcinoma metastatic [Fatal]

NARRATIVE: CASE EVENT DATE: 201106
